FAERS Safety Report 22980298 (Version 3)
Quarter: 2023Q4

REPORT INFORMATION
  Report Type: Spontaneous
  Country: BR (occurrence: BR)
  Receive Date: 20230925
  Receipt Date: 20231122
  Transmission Date: 20240110
  Serious: Yes (Death, Other)
  Sender: FDA-Public Use
  Company Number: BR-SA-2023SA288152

PATIENT
  Age: 30 Day
  Sex: Male

DRUGS (1)
  1. ENOXAPARIN SODIUM [Suspect]
     Active Substance: ENOXAPARIN SODIUM
     Indication: Foetal exposure during pregnancy
     Dosage: 2 DF, QD
     Route: 058

REACTIONS (3)
  - Hypercoagulation [Fatal]
  - Cardiac arrest [Fatal]
  - Foetal exposure during pregnancy [Unknown]
